FAERS Safety Report 20955858 (Version 1)
Quarter: 2022Q2

REPORT INFORMATION
  Report Type: Spontaneous
  Country: US (occurrence: US)
  Receive Date: 20220614
  Receipt Date: 20220614
  Transmission Date: 20220721
  Serious: No
  Sender: FDA-Public Use
  Company Number: US-PFM-2020-14628

PATIENT
  Sex: Female
  Weight: 4.481 kg

DRUGS (3)
  1. HEMANGEOL [Suspect]
     Active Substance: PROPRANOLOL HYDROCHLORIDE
     Indication: Infantile haemangioma
     Dosage: 0.5 ML, BID (2/DAY)
     Route: 048
     Dates: start: 20200514
  2. HEMANGEOL [Suspect]
     Active Substance: PROPRANOLOL HYDROCHLORIDE
     Dosage: 0.8 ML, BID (2/DAY)
     Route: 048
  3. HEMANGEOL [Suspect]
     Active Substance: PROPRANOLOL HYDROCHLORIDE
     Dosage: 1 ML, BID (2/DAY)
     Route: 048

REACTIONS (2)
  - Incorrect dose administered [Unknown]
  - Product quality issue [Unknown]
